FAERS Safety Report 6821147-6 (Version None)
Quarter: 2010Q3

REPORT INFORMATION
  Report Type: 
  Country: None (occurrence: None)
  Receive Date: 20100707
  Receipt Date: 20080212
  Transmission Date: 20110219
  Serious: Yes (Death, Other)
  Sender: FDA-Public Use
  Company Number: US-PFIZER INC-2007102801

PATIENT
  Age: 52 Year
  Sex: Male
  Weight: 71.7 kg

DRUGS (4)
  1. ZOLOFT [Suspect]
     Dates: end: 20070401
  2. QUETIAPINE [Suspect]
  3. ETHYL ALCOHOL [Suspect]
  4. LAMOTRIGINE [Concomitant]

REACTIONS (2)
  - COMPLETED SUICIDE [None]
  - MULTIPLE DRUG OVERDOSE [None]
